FAERS Safety Report 10093294 (Version 1)
Quarter: 2014Q2

REPORT INFORMATION
  Report Type: Spontaneous
  Country: US (occurrence: US)
  Receive Date: 20140421
  Receipt Date: 20140421
  Transmission Date: 20141212
  Serious: No
  Sender: FDA-Public Use
  Company Number: US-SA-2013SA131044

PATIENT
  Age: 78 Year
  Sex: Female
  Weight: 74.84 kg

DRUGS (3)
  1. ALLEGRA [Suspect]
     Indication: HYPERSENSITIVITY
     Route: 048
     Dates: start: 20131002, end: 20131022
  2. AMLODIPINE [Concomitant]
     Indication: HYPERTENSION
     Dosage: DAILY DOSE 1-2.5 MG/ DAY
     Dates: start: 201207
  3. GUANFACINE [Concomitant]
     Indication: HYPERTENSION
     Dosage: HALF TABLET DAILY
     Dates: start: 2013

REACTIONS (1)
  - Urine output decreased [Recovering/Resolving]
